FAERS Safety Report 4733293-1 (Version None)
Quarter: 2005Q3

REPORT INFORMATION
  Report Type: 
  Country: None (occurrence: None)
  Receive Date: 20050803
  Receipt Date: 20050701
  Transmission Date: 20060218
  Serious: Yes (Death, Life-Threatening, Other)
  Sender: FDA-Public Use
  Company Number: JP-BRISTOL-MYERS SQUIBB COMPANY-13025168

PATIENT
  Age: 90 Year
  Sex: Female

DRUGS (10)
  1. AZACTAM [Suspect]
     Indication: PNEUMONIA
     Route: 041
     Dates: start: 20050401, end: 20050411
  2. PRODIF [Suspect]
     Indication: RESPIRATORY MONILIASIS
     Dosage: 23-MAR-2005 TO 24-MAR-2005 200 MG/DAY, THEN 25-MAR-2005 TO 11-APR-2005 100 MG/DAY
     Route: 042
     Dates: start: 20050323, end: 20050411
  3. DYPYRIDAMOLE [Concomitant]
     Indication: ANGINA PECTORIS
     Route: 048
     Dates: start: 20050224, end: 20050412
  4. ALANTA [Concomitant]
     Indication: GASTRIC ULCER
     Route: 048
     Dates: start: 20050224, end: 20050412
  5. COUGHNOL [Concomitant]
     Indication: ASTHMA
     Route: 048
     Dates: start: 20050224, end: 20050412
  6. GASTER [Concomitant]
     Indication: GASTRIC ULCER
     Route: 048
     Dates: start: 20050224, end: 20050412
  7. CRAVIT [Concomitant]
     Indication: PNEUMONIA
     Route: 048
     Dates: start: 20050320, end: 20050329
  8. HOKUNALIN [Concomitant]
     Indication: ASTHMA
     Dates: start: 20050323, end: 20050516
  9. THEO-DUR [Concomitant]
     Indication: ASTHMA
     Route: 048
     Dates: start: 20050328, end: 20050330
  10. SOLITA-T NO. 3 [Concomitant]
     Indication: DEHYDRATION
     Dosage: 1000ML/DAY 29-MAR-2005-30-MAR-05, 500ML/DAY 31-MAR-2005-31-MAR-2005, 1000ML 06-APR-2005-08-APR-2005
     Route: 041
     Dates: start: 20050329, end: 20050408

REACTIONS (8)
  - CARDIAC FAILURE [None]
  - CEREBRAL INFARCTION [None]
  - CONVULSION [None]
  - DISSEMINATED INTRAVASCULAR COAGULATION [None]
  - HEPATIC FUNCTION ABNORMAL [None]
  - MULTI-ORGAN FAILURE [None]
  - MYOCARDIAL INFARCTION [None]
  - RENAL IMPAIRMENT [None]
